FAERS Safety Report 14083302 (Version 1)
Quarter: 2017Q4

REPORT INFORMATION
  Report Type: Report from Study
  Country: CA (occurrence: CA)
  Receive Date: 20171013
  Receipt Date: 20171013
  Transmission Date: 20180321
  Serious: Yes (Other)
  Sender: FDA-Public Use
  Company Number: CA-AMGEN-CANSL2017145938

PATIENT
  Age: 68 Year
  Sex: Female
  Weight: 84.35 kg

DRUGS (1)
  1. PROLIA [Suspect]
     Active Substance: DENOSUMAB
     Indication: PRODUCT USED FOR UNKNOWN INDICATION
     Dosage: UNK
     Route: 065
     Dates: start: 20140210

REACTIONS (1)
  - Temporomandibular joint syndrome [Recovering/Resolving]

NARRATIVE: CASE EVENT DATE: 201709
